FAERS Safety Report 5380031-8 (Version None)
Quarter: 2007Q2

REPORT INFORMATION
  Report Type: 
  Country: None (occurrence: None)
  Receive Date: 20070530
  Receipt Date: 20070307
  Transmission Date: 20071010
  Serious: No
  Sender: FDA-Public Use
  Company Number: 2007PV031278

PATIENT
  Age: 64 Year
  Sex: Male
  Weight: 87.2721 kg

DRUGS (5)
  1. BYETTA [Suspect]
     Indication: DIABETES MELLITUS NON-INSULIN-DEPENDENT
     Dosage: 10 MCG; BID; SC; 5 MCG; BID; SC
     Route: 058
     Dates: start: 20051201, end: 20060301
  2. BYETTA [Suspect]
     Indication: DIABETES MELLITUS NON-INSULIN-DEPENDENT
     Dosage: 10 MCG; BID; SC; 5 MCG; BID; SC
     Route: 058
     Dates: start: 20060301
  3. GLUCOPHAGE [Concomitant]
  4. ALTACE [Concomitant]
  5. ZOCOR [Concomitant]

REACTIONS (4)
  - BENIGN BREAST NEOPLASM [None]
  - GYNAECOMASTIA [None]
  - NIPPLE PAIN [None]
  - WEIGHT DECREASED [None]
